FAERS Safety Report 24824557 (Version 1)
Quarter: 2025Q1

REPORT INFORMATION
  Report Type: Spontaneous
  Country: US (occurrence: US)
  Receive Date: 20250109
  Receipt Date: 20250109
  Transmission Date: 20250409
  Serious: Yes (Life-Threatening, Other)
  Sender: ACCORD
  Company Number: US-MLMSERVICE-20241226-PI324054-00057-1

PATIENT
  Age: 77 Year
  Sex: Female

DRUGS (2)
  1. ATORVASTATIN [Suspect]
     Active Substance: ATORVASTATIN
     Indication: Product used for unknown indication
  2. FLUCONAZOLE [Concomitant]
     Active Substance: FLUCONAZOLE

REACTIONS (3)
  - Acute respiratory failure [Unknown]
  - Rhabdomyolysis [Unknown]
  - Mental status changes [Unknown]
